FAERS Safety Report 10544288 (Version 1)
Quarter: 2014Q4

REPORT INFORMATION
  Report Type: Spontaneous
  Country: DE (occurrence: DE)
  Receive Date: 20141027
  Receipt Date: 20141027
  Transmission Date: 20150529
  Serious: Yes (Death)
  Sender: FDA-Public Use
  Company Number: GXKR2014DE003947

PATIENT

DRUGS (1)
  1. VALPROIC ACID. [Suspect]
     Active Substance: VALPROIC ACID
     Indication: EPILEPSY
     Dosage: 1500 [MG/D ]
     Route: 064

REACTIONS (4)
  - Death [Fatal]
  - Pulmonary fibrosis [Fatal]
  - Pneumothorax [None]
  - Maternal drugs affecting foetus [None]
